FAERS Safety Report 8541140 (Version 4)
Quarter: 2012Q4

REPORT INFORMATION
  Report Type: Report from Study
  Country: JP (occurrence: JP)
  Receive Date: 20120502
  Receipt Date: 20121228
  Transmission Date: 20130627
  Serious: Yes (Hospitalization, Other)
  Sender: FDA-Public Use
  Company Number: JP-VERTEX PHARMACEUTICALS INC.-AE-2012-006054

PATIENT
  Age: 71 Year
  Sex: Male

DRUGS (10)
  1. VX-950 (TELAPREVIR) [Suspect]
     Indication: CHRONIC HEPATITIS C
     Dosage: 2250 mg, qd
     Route: 048
     Dates: start: 20120117, end: 20120229
  2. VX-950 (TELAPREVIR) [Suspect]
     Dosage: 1500 mg, qd
     Route: 048
     Dates: start: 20120301, end: 20120320
  3. REBETOL [Suspect]
     Indication: CHRONIC HEPATITIS C
     Dosage: 600 mg, qd
     Route: 048
     Dates: start: 20120117, end: 20120130
  4. REBETOL [Suspect]
     Dosage: 200 mg, qd
     Route: 048
     Dates: start: 20120131, end: 20120320
  5. PEGINTERFERON ALFA-2B [Suspect]
     Indication: CHRONIC HEPATITIS C
     Dosage: 1.5 ?g/kg, qw
     Route: 058
     Dates: start: 20120117, end: 20120327
  6. ZANTAC [Concomitant]
     Dosage: 300 mg, qd
     Route: 048
  7. GLUFAST [Concomitant]
     Dosage: 30 mg, qd
     Route: 048
  8. TAMIFLU [Concomitant]
     Dosage: 75 mg, qd
     Route: 048
     Dates: start: 20120204, end: 20120209
  9. CALONAL [Concomitant]
     Route: 048
     Dates: start: 20120118
  10. PRIMPERAN [Concomitant]
     Route: 048
     Dates: start: 20120126

REACTIONS (2)
  - Pancreatitis acute [Recovered/Resolved]
  - Anaemia [Recovered/Resolved]
